FAERS Safety Report 21303788 (Version 1)
Quarter: 2022Q3

REPORT INFORMATION
  Report Type: Other
  Country: US (occurrence: US)
  Receive Date: 20220907
  Receipt Date: 20220907
  Transmission Date: 20221027
  Serious: No
  Sender: FDA-Public Use
  Company Number: US-LEADIANT BIOSCIENCES, INC.-2021STPI000220

PATIENT
  Sex: Male

DRUGS (1)
  1. MATULANE [Suspect]
     Active Substance: PROCARBAZINE HYDROCHLORIDE
     Indication: Brain neoplasm malignant
     Dosage: 50 MILLIGRAM, TAKE 3 CAPULES (150 MG TOTAL) FOR 7 DAYS THEN TAKE 2 CAPSULES (100 MG TOTAL) ON DAYS 8
     Dates: start: 20201105

REACTIONS (4)
  - Nausea [Unknown]
  - Appetite disorder [Unknown]
  - Myalgia [Unknown]
  - Fatigue [Unknown]
